FAERS Safety Report 16712737 (Version 1)
Quarter: 2019Q3

REPORT INFORMATION
  Report Type: Report from Study
  Country: None (occurrence: RO)
  Receive Date: 20190817
  Receipt Date: 20190817
  Transmission Date: 20191004
  Serious: Yes (Hospitalization)
  Sender: FDA-Public Use
  Company Number: RO-ABBVIE-19K-135-2888770-00

PATIENT
  Age: 71 Year
  Sex: Female

DRUGS (1)
  1. DUODOPA [Suspect]
     Active Substance: CARBIDOPA\LEVODOPA
     Indication: PARKINSON^S DISEASE
     Dosage: DM=15.00; DC=4.50; ED=2.00; NR ED=2; DMN=0.00; DCN=0.00; EDN=0.00; NR EDN=0
     Route: 050
     Dates: start: 20190618

REACTIONS (5)
  - General physical condition abnormal [Recovering/Resolving]
  - Umbilical hernia, obstructive [Recovering/Resolving]
  - Palpitations [Recovering/Resolving]
  - Respiratory failure [Recovering/Resolving]
  - Hypotension [Recovering/Resolving]

NARRATIVE: CASE EVENT DATE: 20190812
